FAERS Safety Report 8841610 (Version 3)
Quarter: 2013Q1

REPORT INFORMATION
  Report Type: Spontaneous
  Country: SG (occurrence: SG)
  Receive Date: 20121015
  Receipt Date: 20130103
  Transmission Date: 20140127
  Serious: Yes (Other)
  Sender: FDA-Public Use
  Company Number: SG-PFIZER INC-2012250968

PATIENT
  Age: 63 Year
  Sex: Female

DRUGS (9)
  1. CELEBREX [Suspect]
     Indication: PAIN
     Dosage: 200 MG, 2X/DAY OR PRN, 400MG LOADING DOSE IF ACUTE/SEVERE PAIN WITH MAXIMUM OF 600MG/DAY
  2. CELEBREX [Suspect]
     Indication: PAIN
  3. CELEBREX [Suspect]
     Indication: BACK PAIN
  4. ASPIRIN [Concomitant]
  5. ATORVASTATIN [Concomitant]
  6. CAMCOLIT [Concomitant]
  7. SEROQUEL [Concomitant]
  8. CLONAZEPAM [Concomitant]
  9. LYRICA [Concomitant]

REACTIONS (4)
  - Pain [Recovered/Resolved]
  - Depression [Recovered/Resolved]
  - Panic attack [Recovered/Resolved]
  - Mood swings [Recovered/Resolved]
